FAERS Safety Report 4616706-5 (Version None)
Quarter: 2005Q1

REPORT INFORMATION
  Report Type: 
  Country: None (occurrence: None)
  Receive Date: 20050318
  Receipt Date: 20050307
  Transmission Date: 20050727
  Serious: Yes (Other)
  Sender: FDA-Public Use
  Company Number: 200510003BCC

PATIENT
  Age: 53 Year
  Sex: Female
  Weight: 90.7194 kg

DRUGS (10)
  1. ALEVE (CAPLET) [Suspect]
     Indication: PAIN
     Dosage: SEE IMAGE
     Route: 048
     Dates: start: 20040601, end: 20041201
  2. ALEVE (CAPLET) [Suspect]
     Indication: PSORIASIS
     Dosage: SEE IMAGE
     Route: 048
     Dates: start: 20040601, end: 20041201
  3. ALEVE (CAPLET) [Suspect]
     Indication: PAIN
     Dosage: SEE IMAGE
     Route: 048
     Dates: start: 20041001
  4. ALEVE (CAPLET) [Suspect]
     Indication: PSORIASIS
     Dosage: SEE IMAGE
     Route: 048
     Dates: start: 20041001
  5. ALEVE (CAPLET) [Suspect]
     Indication: PAIN
     Dosage: SEE IMAGE
     Route: 048
     Dates: start: 20041218
  6. ALEVE (CAPLET) [Suspect]
     Indication: PSORIASIS
     Dosage: SEE IMAGE
     Route: 048
     Dates: start: 20041218
  7. TRIAMCINOLONE ACETONIDE [Concomitant]
  8. MULTIVITAMIN AND MINERAL SUPPLEMENT [Concomitant]
  9. TUMS [Concomitant]
  10. FLAX SEED OIL [Concomitant]

REACTIONS (5)
  - CARDIAC DISORDER [None]
  - CHEST PAIN [None]
  - EXTRASYSTOLES [None]
  - OXYGEN SATURATION DECREASED [None]
  - PALPITATIONS [None]
